FAERS Safety Report 11536169 (Version 1)
Quarter: 2015Q3

REPORT INFORMATION
  Report Type: Spontaneous
  Country: US (occurrence: None)
  Receive Date: 20150921
  Receipt Date: 20150921
  Transmission Date: 20151125
  Serious: Yes (Other)
  Sender: FDA-Public Use
  Company Number: None

PATIENT

DRUGS (1)
  1. IFEREX 150 [Suspect]
     Active Substance: IRON

REACTIONS (3)
  - Product expiration date issue [None]
  - Product barcode issue [None]
  - Product lot number issue [None]
